FAERS Safety Report 4436640-3 (Version None)
Quarter: 2004Q3

REPORT INFORMATION
  Report Type: 
  Country: None (occurrence: None)
  Receive Date: 20040830
  Receipt Date: 20040723
  Transmission Date: 20050211
  Serious: No
  Sender: FDA-Public Use
  Company Number: US-BRISTOL-MYERS SQUIBB COMPANY-12648929

PATIENT
  Sex: Female

DRUGS (3)
  1. ABILIFY [Suspect]
  2. EFFEXOR XR [Concomitant]
  3. SEROQUEL [Concomitant]

REACTIONS (1)
  - OEDEMA PERIPHERAL [None]
